FAERS Safety Report 8641733 (Version 3)
Quarter: 2014Q1

REPORT INFORMATION
  Report Type: Spontaneous
  Country: US (occurrence: None)
  Receive Date: 20120323
  Receipt Date: 20140306
  Transmission Date: 20141002
  Serious: Yes (Other)
  Sender: FDA-Public Use
  Company Number: 163-21880-11102157

PATIENT
  Age: 78 Year
  Sex: Female

DRUGS (15)
  1. REVLIMID (LENALIDOMIDE) (10 MILLIGRAM, CAPSULES) [Suspect]
     Indication: PLASMA CELL MYELOMA
     Dosage: 25 MG, DAILY FOR 21 DAYS, PO
     Route: 048
     Dates: start: 20110915
  2. METHYLPREDNISOLONE [Concomitant]
  3. OXYCODONE HCL (OXYCODONE HYDROCHLORIDE) [Concomitant]
  4. CLARITIN-D (NARINE REPETABS) [Concomitant]
  5. VITAMIN B6 (PYRIDOXINE HYDROCHLORIDE) [Concomitant]
  6. OXYCONTIN (OXYCODONE HYDROCHLORIDE) [Concomitant]
  7. PLAVIX (DCLOPIDOGREL SULFATE) [Concomitant]
  8. EFFEXOR XR (VENLAFAXINE HYDROCHLORIDE) (75 MILLIGRAM, CAPSULE) (VENLAFAXINE HYDROCHLORIDE) [Concomitant]
  9. DEXAMETHASONE [Concomitant]
  10. LIPITOR (ATORVASTATIN) [Concomitant]
  11. POTASSIUM CHLORIDE [Concomitant]
  12. PRILOSEC (OMEPRAZOLE) [Concomitant]
  13. IMODIUM A-D (LOPERAMIDE HYDROCHLORIDE) [Concomitant]
  14. VITAMIN D3 (COLECALCIFEROL) [Concomitant]
  15. MULTIVITAMINS [Concomitant]

REACTIONS (2)
  - Cerebrovascular accident [None]
  - Diarrhoea [None]
